FAERS Safety Report 5905339-6 (Version None)
Quarter: 2008Q4

REPORT INFORMATION
  Report Type: 
  Country: None (occurrence: None)
  Receive Date: 20081001
  Receipt Date: 20080924
  Transmission Date: 20090506
  Serious: Yes (Hospitalization)
  Sender: FDA-Public Use
  Company Number: US-AMGEN-QUU309727

PATIENT
  Sex: Male

DRUGS (2)
  1. ENBREL [Suspect]
     Indication: RHEUMATOID ARTHRITIS
     Route: 058
     Dates: start: 20000301
  2. ARAVA [Concomitant]

REACTIONS (4)
  - ARTHRALGIA [None]
  - BURNING SENSATION [None]
  - RASH ERYTHEMATOUS [None]
  - SPINAL COLUMN STENOSIS [None]
